FAERS Safety Report 5662505-5 (Version None)
Quarter: 2008Q1

REPORT INFORMATION
  Report Type: 
  Country: None (occurrence: None)
  Receive Date: 20080313
  Receipt Date: 20080304
  Transmission Date: 20080703
  Serious: Yes (Other)
  Sender: FDA-Public Use
  Company Number: JP-JNJFOC-20080301790

PATIENT
  Sex: Female

DRUGS (3)
  1. ITRIZOLE [Suspect]
     Indication: BRONCHOPULMONARY ASPERGILLOSIS
     Route: 048
  2. MUCOSTA [Concomitant]
     Route: 048
  3. ALTAT [Concomitant]
     Route: 065

REACTIONS (3)
  - DYSPNOEA [None]
  - OXYGEN SATURATION DECREASED [None]
  - VITAL CAPACITY DECREASED [None]
